FAERS Safety Report 4861568-4 (Version None)
Quarter: 2005Q4

REPORT INFORMATION
  Report Type: 
  Country: None (occurrence: None)
  Receive Date: 20051220
  Receipt Date: 20051209
  Transmission Date: 20060501
  Serious: Yes (Other)
  Sender: FDA-Public Use
  Company Number: CA-BRISTOL-MYERS SQUIBB COMPANY-13219183

PATIENT
  Age: 79 Year
  Sex: Male

DRUGS (18)
  1. TEQUIN [Suspect]
  2. ASPIRIN [Concomitant]
  3. ATROVENT [Concomitant]
  4. FESOFOR [Concomitant]
  5. FLOVENT [Concomitant]
  6. FUROSEMIDE [Concomitant]
  7. GLICLAZIDE [Concomitant]
  8. LORAZEPAM [Concomitant]
  9. LOSEC [Concomitant]
  10. METFORMIN HCL [Concomitant]
  11. METOPROLOL [Concomitant]
  12. NITROGLYCERIN [Concomitant]
  13. RAMIPRIL [Concomitant]
  14. ROBITUSSIN AC [Concomitant]
  15. SIMVASTATIN TAB [Concomitant]
  16. TEMAZEPAM [Concomitant]
  17. VENTOLIN [Concomitant]
  18. XALATAN [Concomitant]

REACTIONS (3)
  - BLOOD OSMOLARITY [None]
  - DEPRESSED LEVEL OF CONSCIOUSNESS [None]
  - HYPERGLYCAEMIA [None]
